FAERS Safety Report 24364494 (Version 1)
Quarter: 2024Q3

REPORT INFORMATION
  Report Type: Spontaneous
  Country: US (occurrence: US)
  Receive Date: 20240926
  Receipt Date: 20240926
  Transmission Date: 20241016
  Serious: No
  Sender: DR REDDYS
  Company Number: US-drreddys-SPO/USA/23/0179523

PATIENT
  Age: 63 Year
  Sex: Male

DRUGS (1)
  1. CLOZAPINE [Suspect]
     Active Substance: CLOZAPINE
     Indication: Product used for unknown indication
     Route: 065

REACTIONS (7)
  - Red blood cell count decreased [Unknown]
  - Haemoglobin decreased [Unknown]
  - Haematocrit decreased [Unknown]
  - Blood potassium increased [Unknown]
  - Globulins decreased [Unknown]
  - Blood bilirubin decreased [Unknown]
  - Nephropathy [Unknown]

NARRATIVE: CASE EVENT DATE: 20230908
